FAERS Safety Report 6973636-1 (Version None)
Quarter: 2010Q3

REPORT INFORMATION
  Report Type: 
  Country: None (occurrence: None)
  Receive Date: 20100909
  Receipt Date: 20100831
  Transmission Date: 20110219
  Serious: Yes (Death)
  Sender: FDA-Public Use
  Company Number: US-AMGEN-QUU435042

PATIENT
  Sex: Female

DRUGS (2)
  1. ARANESP [Suspect]
     Indication: ANAEMIA OF MALIGNANT DISEASE
  2. UNSPECIFIED ANTINEOPLASTIC AGENT [Concomitant]

REACTIONS (1)
  - DEATH [None]
